FAERS Safety Report 7445225-6 (Version None)
Quarter: 2011Q2

REPORT INFORMATION
  Report Type: 
  Country: None (occurrence: None)
  Receive Date: 20110429
  Receipt Date: 20110412
  Transmission Date: 20111010
  Serious: No
  Sender: FDA-Public Use
  Company Number: US-JNJFOC-20110405213

PATIENT
  Age: 51 Year
  Sex: Female
  Weight: 84.82 kg

DRUGS (2)
  1. INVEGA SUSTENNA [Suspect]
     Indication: SCHIZOAFFECTIVE DISORDER
     Route: 030
  2. TRAZODONE [Concomitant]
     Indication: SLEEP DISORDER THERAPY
     Dosage: HOUR OF SLEEP, AS NEEDED
     Route: 065

REACTIONS (3)
  - MUSCLE SPASMS [None]
  - INJECTION SITE MASS [None]
  - INJECTION SITE PAIN [None]
